FAERS Safety Report 13812615 (Version 1)
Quarter: 2017Q3

REPORT INFORMATION
  Report Type: Spontaneous
  Country: TR (occurrence: TR)
  Receive Date: 20170728
  Receipt Date: 20170728
  Transmission Date: 20171127
  Serious: Yes (Death, Hospitalization)
  Sender: FDA-Public Use
  Company Number: PHHY2017TR110938

PATIENT
  Age: 69 Year
  Sex: Female

DRUGS (2)
  1. DEFERASIROX [Suspect]
     Active Substance: DEFERASIROX
     Indication: HAEMOCHROMATOSIS
     Dosage: 1 G, QD
     Route: 065
  2. AMLODIPINE BESILATE [Concomitant]
     Active Substance: AMLODIPINE BESYLATE
     Indication: PRODUCT USED FOR UNKNOWN INDICATION
     Route: 065

REACTIONS (7)
  - Thrombosis [Fatal]
  - Duodenal ulcer perforation [Fatal]
  - Hypovolaemic shock [Fatal]
  - Melaena [Fatal]
  - Gastrointestinal haemorrhage [Fatal]
  - Anaemia [Fatal]
  - Abdominal pain [Fatal]
